FAERS Safety Report 6180246-5 (Version None)
Quarter: 2009Q2

REPORT INFORMATION
  Report Type: 
  Country: None (occurrence: None)
  Receive Date: 20090504
  Receipt Date: 20090420
  Transmission Date: 20091009
  Serious: Yes (Hospitalization)
  Sender: FDA-Public Use
  Company Number: 233306K09USA

PATIENT
  Age: 22 Year
  Sex: Female
  Weight: 120 kg

DRUGS (4)
  1. REBIF [Suspect]
     Indication: MULTIPLE SCLEROSIS
     Dosage: 44 MCG, 3 IN 1 WEEKS, SUBCUTANEOUS
     Route: 058
     Dates: start: 20080731
  2. ALEVE (CAPLET) [Concomitant]
  3. TYLENOL (COTYLENOL) [Concomitant]
  4. IBUPROFEN [Concomitant]

REACTIONS (6)
  - ASTHENIA [None]
  - CENTRAL NERVOUS SYSTEM LESION [None]
  - CONDITION AGGRAVATED [None]
  - CONVULSION [None]
  - FAECAL INCONTINENCE [None]
  - HYPOAESTHESIA [None]
